FAERS Safety Report 6965344-8 (Version None)
Quarter: 2010Q3

REPORT INFORMATION
  Report Type: 
  Country: None (occurrence: None)
  Receive Date: 20100903
  Receipt Date: 20100826
  Transmission Date: 20110219
  Serious: Yes (Other)
  Sender: FDA-Public Use
  Company Number: BR-PFIZER INC-2010108238

PATIENT
  Age: 33 Year
  Sex: Male
  Weight: 72 kg

DRUGS (4)
  1. CHAMPIX [Suspect]
     Indication: TOBACCO USER
     Dosage: UNK
     Route: 048
     Dates: start: 20100702, end: 20100101
  2. CHAMPIX [Suspect]
     Dosage: 1 MG, 2X/DAY, EVERY 12 HOURS
     Route: 048
     Dates: start: 20100101
  3. ABILIFY [Concomitant]
     Indication: SCHIZOPHRENIA
     Dosage: 10 MG, 1X/DAY
     Route: 048
  4. ABILIFY [Concomitant]
     Indication: PSYCHOTIC DISORDER

REACTIONS (3)
  - EMOTIONAL DISTRESS [None]
  - PSYCHOTIC DISORDER [None]
  - SCHIZOPHRENIA [None]
